FAERS Safety Report 4469698-6 (Version None)
Quarter: 2004Q3

REPORT INFORMATION
  Report Type: 
  Country: None (occurrence: None)
  Receive Date: 20040917
  Receipt Date: 20031211
  Transmission Date: 20050211
  Serious: Yes (Hospitalization, Disabling)
  Sender: FDA-Public Use
  Company Number: 2003-BP-10645BP(0)

PATIENT
  Age: 30 Year
  Sex: Female
  Weight: 60 kg

DRUGS (5)
  1. VIRAMUNE [Suspect]
     Indication: HIV INFECTION
     Dosage: SEE IMAGE
     Route: 048
     Dates: start: 20031001, end: 20031003
  2. VIRAMUNE [Suspect]
     Indication: HIV INFECTION
     Dosage: SEE IMAGE
     Route: 048
     Dates: start: 20030917
  3. ZIDOVUDINE [Concomitant]
  4. RITONAVIR [Concomitant]
  5. SAQUINAVIR [Concomitant]

REACTIONS (1)
  - STEVENS-JOHNSON SYNDROME [None]
